FAERS Safety Report 6510308-1 (Version None)
Quarter: 2009Q4

REPORT INFORMATION
  Report Type: 
  Country: None (occurrence: None)
  Receive Date: 20091222
  Receipt Date: 20091002
  Transmission Date: 20100525
  Serious: No
  Sender: FDA-Public Use
  Company Number: US-ASTRAZENECA-2009SE15792

PATIENT
  Age: 50 Year
  Sex: Male
  Weight: 117.9 kg

DRUGS (4)
  1. CRESTOR [Suspect]
     Indication: BLOOD CHOLESTEROL INCREASED
     Route: 048
     Dates: start: 20081101, end: 20090320
  2. CRESTOR [Suspect]
     Route: 048
     Dates: start: 20090401, end: 20090701
  3. PANTOPRAZOLE [Concomitant]
  4. CIALIS [Concomitant]

REACTIONS (4)
  - BACK PAIN [None]
  - MUSCLE SPASMS [None]
  - MUSCULOSKELETAL PAIN [None]
  - MUSCULOSKELETAL STIFFNESS [None]
